FAERS Safety Report 8580876-7 (Version None)
Quarter: 2012Q3

REPORT INFORMATION
  Report Type: 
  Country: None (occurrence: None)
  Receive Date: 20120726
  Receipt Date: 20120621
  Transmission Date: 20120928
  Serious: Yes (Hospitalization)
  Sender: FDA-Public Use
  Company Number: 2012HINREG0011

PATIENT
  Age: 60 Year
  Sex: Female
  Weight: 76.2 kg

DRUGS (5)
  1. CO-CODAMOL (CODINE PHOSPHATE + PARACETAMOL) [Concomitant]
  2. LEVETIRACETAM [Suspect]
     Indication: PRODUCT USED FOR UNKNOWN INDICATION
     Dosage: 750 MG, BID, ORAL
     Route: 048
  3. PREGABALIN [Suspect]
     Indication: PRODUCT USED FOR UNKNOWN INDICATION
     Dosage: 50 MG, BID, ORAL
     Route: 048
  4. LANSOPRAZOLE [Concomitant]
  5. VALPROATE SODIUM [Suspect]
     Indication: EPILEPSY
     Dosage: 1 G, BID, ORAL
     Route: 048

REACTIONS (4)
  - ABDOMINAL PAIN [None]
  - PANCREATITIS [None]
  - TENDERNESS [None]
  - ABDOMINAL DISTENSION [None]
